FAERS Safety Report 9331643 (Version 1)
Quarter: 2013Q2

REPORT INFORMATION
  Report Type: Spontaneous
  Country: SE (occurrence: SE)
  Receive Date: 20130605
  Receipt Date: 20130605
  Transmission Date: 20140414
  Serious: Yes (Other)
  Sender: FDA-Public Use
  Company Number: SE-PFIZER INC-2013168025

PATIENT
  Age: 26 Year
  Sex: Male

DRUGS (2)
  1. LYRICA [Suspect]
     Indication: PAIN
     Dosage: UNK
     Dates: end: 20130503
  2. TRADOLAN [Suspect]
     Indication: PAIN
     Dosage: UNK
     Dates: end: 20130503

REACTIONS (2)
  - Epilepsy [Unknown]
  - Muscle spasms [Unknown]
